FAERS Safety Report 18718967 (Version 1)
Quarter: 2021Q1

REPORT INFORMATION
  Report Type: Spontaneous
  Country: US (occurrence: US)
  Receive Date: 20210108
  Receipt Date: 20210108
  Transmission Date: 20210419
  Serious: No
  Sender: FDA-Public Use
  Company Number: US-NOVOPROD-764358

PATIENT
  Age: 22 Year
  Sex: Female

DRUGS (2)
  1. RYBELSUS [Suspect]
     Active Substance: SEMAGLUTIDE
     Indication: OBESITY
     Dosage: 7 MG, QD
     Route: 048
     Dates: start: 20200807, end: 20200828
  2. RYBELSUS [Suspect]
     Active Substance: SEMAGLUTIDE
     Indication: METABOLIC SYNDROME

REACTIONS (1)
  - Abdominal pain [Recovered/Resolved]

NARRATIVE: CASE EVENT DATE: 202008
